FAERS Safety Report 8625294-8 (Version None)
Quarter: 2012Q3

REPORT INFORMATION
  Report Type: 
  Country: None (occurrence: None)
  Receive Date: 20120827
  Receipt Date: 20120817
  Transmission Date: 20120928
  Serious: Yes (Hospitalization, Other)
  Sender: FDA-Public Use
  Company Number: US-ABBOTT-12P-163-0970197-00

PATIENT
  Age: 58 Year
  Sex: Female

DRUGS (11)
  1. FOLIC ACID [Concomitant]
     Indication: PRODUCT USED FOR UNKNOWN INDICATION
  2. VITAMIN D [Concomitant]
     Indication: PRODUCT USED FOR UNKNOWN INDICATION
  3. PROCARDIA [Concomitant]
     Indication: HYPERTENSION
  4. COUMADIN [Concomitant]
     Indication: THROMBOSIS
     Dosage: 3MG ONCE A DAY AND 4MG THE NEXT DAY
  5. SINGULAIR [Concomitant]
     Indication: ASTHMA
  6. POTASSIUM [Concomitant]
     Indication: PRODUCT USED FOR UNKNOWN INDICATION
     Dosage: CONCURRENT WITH LASIX
  7. METHOTREXATE [Concomitant]
     Indication: PRODUCT USED FOR UNKNOWN INDICATION
  8. HUMIRA [Suspect]
     Indication: PSORIATIC ARTHROPATHY
     Dates: start: 20120413
  9. LASIX [Concomitant]
     Indication: BLOOD PRESSURE
  10. SYMBICORT [Concomitant]
     Indication: ASTHMA
  11. OMEPRAZOLE [Concomitant]
     Indication: GASTRIC DISORDER

REACTIONS (7)
  - ABDOMINAL DISCOMFORT [None]
  - SINUSITIS [None]
  - UPPER-AIRWAY COUGH SYNDROME [None]
  - HEADACHE [None]
  - SNEEZING [None]
  - DIARRHOEA [None]
  - GALLBLADDER DISORDER [None]
